FAERS Safety Report 14671021 (Version 3)
Quarter: 2018Q2

REPORT INFORMATION
  Report Type: Spontaneous
  Country: CA (occurrence: CA)
  Receive Date: 20180322
  Receipt Date: 20180522
  Transmission Date: 20180711
  Serious: Yes (Other)
  Sender: FDA-Public Use
  Company Number: CA-GILEAD-2018-0328163

PATIENT
  Age: 62 Year
  Sex: Female
  Weight: 115 kg

DRUGS (8)
  1. VOSEVI [Suspect]
     Active Substance: SOFOSBUVIR\VELPATASVIR\VOXILAPREVIR
     Indication: CHRONIC HEPATITIS C
     Dosage: UNK
     Route: 065
     Dates: start: 20180128, end: 20180428
  2. OXYNEO [Concomitant]
     Active Substance: OXYCODONE
  3. TOPIRAMATE. [Concomitant]
     Active Substance: TOPIRAMATE
  4. RIBAVIRIN. [Suspect]
     Active Substance: RIBAVIRIN
     Indication: CHRONIC HEPATITIS C
     Dosage: 1200 MG, UNK
     Route: 048
     Dates: start: 20180204, end: 20180319
  5. SUMATRIPTAN. [Concomitant]
     Active Substance: SUMATRIPTAN
  6. TEMAZEPAM. [Concomitant]
     Active Substance: TEMAZEPAM
  7. DIMENHYDRINATE. [Concomitant]
     Active Substance: DIMENHYDRINATE
  8. PERCOCET                           /00446701/ [Concomitant]
     Active Substance: ACETAMINOPHEN\OXYCODONE HYDROCHLORIDE\OXYCODONE TEREPHTHALATE

REACTIONS (2)
  - Vasculitis [Unknown]
  - Rash [Not Recovered/Not Resolved]

NARRATIVE: CASE EVENT DATE: 20180310
